FAERS Safety Report 6969077-3 (Version None)
Quarter: 2010Q3

REPORT INFORMATION
  Report Type: 
  Country: None (occurrence: None)
  Receive Date: 20100902
  Receipt Date: 20100827
  Transmission Date: 20110219
  Serious: Yes (Other)
  Sender: FDA-Public Use
  Company Number: 2010SP034718

PATIENT
  Sex: Female

DRUGS (1)
  1. IMPLANON [Suspect]
     Indication: CONTRACEPTION
     Dosage: SBDE
     Route: 059
     Dates: start: 20100407, end: 20100607

REACTIONS (4)
  - DEVICE EXPULSION [None]
  - IMPLANT SITE INFECTION [None]
  - OPEN WOUND [None]
  - STAPHYLOCOCCAL INFECTION [None]
